FAERS Safety Report 21846098 (Version 4)
Quarter: 2023Q1

REPORT INFORMATION
  Report Type: Report from Study
  Country: KR (occurrence: None)
  Receive Date: 20230111
  Receipt Date: 20230228
  Transmission Date: 20230418
  Serious: Yes (Hospitalization)
  Sender: FDA-Public Use
  Company Number: KR-ROCHE-3257543

PATIENT
  Age: 64 Year
  Sex: Male
  Weight: 58.3 kg

DRUGS (20)
  1. TIRAGOLUMAB [Suspect]
     Active Substance: TIRAGOLUMAB
     Indication: Non-small cell lung cancer metastatic
     Dosage: ON 29/DEC/2022 START DATE OF MOST RECENT DOSE 600 MG OF BLINDED TIRAGOLUMAB PRIOR TO AE/SAE.
     Route: 042
     Dates: start: 20221229
  2. ATEZOLIZUMAB [Suspect]
     Active Substance: ATEZOLIZUMAB
     Indication: Non-small cell lung cancer metastatic
     Dosage: ON 29/DEC/2022 START DATE OF MOST RECENT DOSE OF BLINDED ATEZOLIZUMAB PRIOR TO SAE.
     Route: 041
     Dates: start: 20221229
  3. ATEZOLIZUMAB [Suspect]
     Active Substance: ATEZOLIZUMAB
     Indication: Non-small cell lung cancer metastatic
     Dosage: ON 29/DEC/2022 START DATE OF MOST RECENT DOSE OF BLINDED PEMBROLIZUMAB PRIOR TO SAE.
     Route: 041
     Dates: start: 20221229
  4. CISPLATIN [Suspect]
     Active Substance: CISPLATIN
     Indication: Non-small cell lung cancer metastatic
     Dosage: ON 29/DEC/2022 START DATE OF MOST RECENT DOSE OF CISPLATIN PRIOR TO SAE. DOSE LAST CISPLATIN  ADMIN
     Route: 042
     Dates: start: 20221229
  5. PEMETREXED [Suspect]
     Active Substance: PEMETREXED
     Indication: Non-small cell lung cancer metastatic
     Dosage: ON 29/DEC/2022 START DATE OF MOST RECENT DOSE OF PEMETREXED PRIOR TO SAE. DOSE LAST PEMETREXED ADMIN
     Route: 042
     Dates: start: 20221229
  6. CODEINE PHOSPHATE [Concomitant]
     Active Substance: CODEINE PHOSPHATE
     Indication: Cough
     Route: 048
     Dates: start: 20221212
  7. FENTANYL CITRATE [Concomitant]
     Active Substance: FENTANYL CITRATE
     Route: 048
     Dates: start: 20221212
  8. LEVODROPROPIZINE [Concomitant]
     Active Substance: LEVODROPROPIZINE
     Route: 048
     Dates: start: 20221212
  9. HERBALS [Concomitant]
     Active Substance: HERBALS
     Route: 048
     Dates: start: 20221212
  10. TARGIN PR [Concomitant]
     Route: 048
     Dates: start: 20221212, end: 20221225
  11. DEXAMETHASONE [Concomitant]
     Active Substance: DEXAMETHASONE
     Route: 048
     Dates: start: 20221228
  12. DEXAMETHASONE [Concomitant]
     Active Substance: DEXAMETHASONE
     Route: 042
     Dates: start: 20221229
  13. FOLIC ACID [Concomitant]
     Active Substance: FOLIC ACID
     Dosage: 1
     Route: 048
     Dates: start: 20221222
  14. COBAMAMIDE [Concomitant]
     Active Substance: COBAMAMIDE
     Route: 030
     Dates: start: 20221229
  15. GRANISETRON HYDROCHLORIDE [Concomitant]
     Active Substance: GRANISETRON HYDROCHLORIDE
     Route: 048
     Dates: start: 20221230
  16. GRANISETRON HYDROCHLORIDE [Concomitant]
     Active Substance: GRANISETRON HYDROCHLORIDE
     Route: 042
     Dates: start: 20221229
  17. FUROSEMIDE [Concomitant]
     Active Substance: FUROSEMIDE
     Route: 042
     Dates: start: 20221229
  18. COOLPREP [Concomitant]
     Route: 048
     Dates: start: 20230105, end: 20230105
  19. MIDAZOLAM [Concomitant]
     Active Substance: MIDAZOLAM
     Route: 042
     Dates: start: 20230105, end: 20230105
  20. MEPERIDINE HYDROCHLORIDE [Concomitant]
     Active Substance: MEPERIDINE HYDROCHLORIDE
     Route: 042
     Dates: start: 20230105, end: 20230105

REACTIONS (1)
  - Colitis [Recovered/Resolved]

NARRATIVE: CASE EVENT DATE: 20230102
